FAERS Safety Report 5114379-9 (Version None)
Quarter: 2006Q3

REPORT INFORMATION
  Report Type: 
  Country: None (occurrence: None)
  Receive Date: 20060731
  Receipt Date: 20060605
  Transmission Date: 20061208
  Serious: No
  Sender: FDA-Public Use
  Company Number: 2006PV015077

PATIENT
  Age: 71 Year
  Sex: Female
  Weight: 90.7194 kg

DRUGS (5)
  1. BYETTA [Suspect]
     Indication: DIABETES MELLITUS NON-INSULIN-DEPENDENT
     Dosage: 5 MCG;BID;SC
     Route: 058
     Dates: start: 20060511, end: 20060603
  2. AMARYL [Concomitant]
  3. METFORMIN [Concomitant]
  4. GLUCOVANCE [Concomitant]
  5. GLUCOPHAGE [Concomitant]

REACTIONS (6)
  - DIARRHOEA [None]
  - HEADACHE [None]
  - SINUS CONGESTION [None]
  - SINUSITIS [None]
  - URTICARIA [None]
  - WEIGHT DECREASED [None]
